FAERS Safety Report 6180861-9 (Version None)
Quarter: 2009Q2

REPORT INFORMATION
  Report Type: 
  Country: None (occurrence: None)
  Receive Date: 20090504
  Receipt Date: 20090504
  Transmission Date: 20091009
  Serious: Yes (Life-Threatening, Disabling, Other)
  Sender: FDA-Public Use
  Company Number: None

PATIENT
  Age: 86 Year
  Sex: Female
  Weight: 52.1637 kg

DRUGS (1)
  1. REGLAN [Suspect]
     Indication: ABDOMINAL DISCOMFORT
     Dosage: ONE TABLET DAILY PO
     Route: 048
     Dates: start: 20080701, end: 20080901

REACTIONS (5)
  - DEPRESSION [None]
  - GAIT DISTURBANCE [None]
  - HIP FRACTURE [None]
  - PERONEAL NERVE PALSY [None]
  - SUICIDAL IDEATION [None]
